FAERS Safety Report 4843615-9 (Version None)
Quarter: 2005Q4

REPORT INFORMATION
  Report Type: 
  Country: None (occurrence: None)
  Receive Date: 20051202
  Receipt Date: 20051121
  Transmission Date: 20060501
  Serious: Yes (Hospitalization)
  Sender: FDA-Public Use
  Company Number: US-JNJFOC-20051106108

PATIENT
  Sex: Female

DRUGS (6)
  1. TYLENOL W/ CODEINE [Suspect]
     Indication: PAIN
  2. ADVIL [Suspect]
     Indication: BACK PAIN
     Route: 048
     Dates: start: 20040801, end: 20051101
  3. ALEVE [Suspect]
     Indication: PAIN
  4. BEXTRA [Suspect]
     Indication: PAIN
  5. CELEBREX [Suspect]
     Indication: PAIN
  6. VIOXX [Suspect]
     Indication: PAIN

REACTIONS (3)
  - DRUG INEFFECTIVE [None]
  - GASTRITIS [None]
  - STOMACH DISCOMFORT [None]
